FAERS Safety Report 19281035 (Version 1)
Quarter: 2021Q2

REPORT INFORMATION
  Report Type: Other
  Country: TW (occurrence: TW)
  Receive Date: 20210521
  Receipt Date: 20210521
  Transmission Date: 20210717
  Serious: Yes (Hospitalization)
  Sender: FDA-Public Use
  Company Number: TW-ORCHID HEALTHCARE-2110787

PATIENT
  Age: 5 Year
  Sex: Female

DRUGS (1)
  1. AMLODIPINE BESYLATE. [Suspect]
     Active Substance: AMLODIPINE BESYLATE
     Indication: BLOOD PRESSURE MEASUREMENT
     Route: 065

REACTIONS (2)
  - Telangiectasia [Recovered/Resolved]
  - Melanoderma [Recovered/Resolved]
